FAERS Safety Report 5034747-3 (Version None)
Quarter: 2006Q2

REPORT INFORMATION
  Report Type: 
  Country: None (occurrence: None)
  Receive Date: 20060621
  Receipt Date: 20060613
  Transmission Date: 20061013
  Serious: Yes (Hospitalization)
  Sender: FDA-Public Use
  Company Number: 200612470GDS

PATIENT
  Age: 65 Year
  Sex: Female

DRUGS (4)
  1. CIPRO XR [Suspect]
     Indication: URINARY TRACT INFECTION
     Dosage: 500 MG, TOTAL DAILY, ORAL
     Route: 048
  2. INSULIN 2 [Concomitant]
  3. CRESTOR [Concomitant]
  4. ASPIRIN [Concomitant]

REACTIONS (3)
  - HYPOGLYCAEMIA [None]
  - INFLUENZA [None]
  - ORAL INTAKE REDUCED [None]
